FAERS Safety Report 6045321-4 (Version None)
Quarter: 2009Q1

REPORT INFORMATION
  Report Type: 
  Country: None (occurrence: None)
  Receive Date: 20090121
  Receipt Date: 20090119
  Transmission Date: 20090719
  Serious: Yes (Death, Other)
  Sender: FDA-Public Use
  Company Number: PHEH2009US00897

PATIENT
  Sex: Female

DRUGS (1)
  1. SANDOSTATIN LAR [Suspect]
     Dosage: UNK
     Dates: start: 20081029

REACTIONS (4)
  - ASPIRATION [None]
  - BONE PAIN [None]
  - DEATH [None]
  - WRONG TECHNIQUE IN DRUG USAGE PROCESS [None]
